FAERS Safety Report 10139769 (Version 3)
Quarter: 2014Q4

REPORT INFORMATION
  Report Type: Spontaneous
  Country: US (occurrence: US)
  Receive Date: 20140429
  Receipt Date: 20141112
  Transmission Date: 20150528
  Serious: Yes (Hospitalization)
  Sender: FDA-Public Use
  Company Number: US-BAYER-2014-061023

PATIENT
  Age: 20 Year
  Sex: Female
  Weight: 106.58 kg

DRUGS (1)
  1. MIRENA [Suspect]
     Active Substance: LEVONORGESTREL
     Indication: CONTRACEPTION
     Dosage: 20 MCG/24HR, CONT
     Route: 015
     Dates: start: 20110309, end: 20130405

REACTIONS (6)
  - Cyst [None]
  - Embedded device [None]
  - Injury [None]
  - Abdominal pain [None]
  - Depression [None]
  - Pelvic pain [None]

NARRATIVE: CASE EVENT DATE: 201304
